FAERS Safety Report 4660717-0 (Version None)
Quarter: 2005Q2

REPORT INFORMATION
  Report Type: 
  Country: None (occurrence: None)
  Receive Date: 20050512
  Receipt Date: 20050215
  Transmission Date: 20051028
  Serious: Yes (Death)
  Sender: FDA-Public Use
  Company Number: US-MERCK-0502USA02119

PATIENT
  Age: 52 Year
  Sex: Male
  Weight: 77 kg

DRUGS (7)
  1. VIOXX [Suspect]
     Indication: MIGRAINE
     Route: 048
     Dates: start: 20000419, end: 20030125
  2. VIOXX [Suspect]
     Route: 048
     Dates: start: 20000419, end: 20030125
  3. VIOXX [Suspect]
     Indication: GOUT
     Route: 048
     Dates: start: 20000419, end: 20030125
  4. VIOXX [Suspect]
     Route: 048
     Dates: start: 20000419, end: 20030125
  5. COLCHICINE [Concomitant]
     Indication: GOUT
     Route: 065
     Dates: start: 19980101
  6. ADVIL [Concomitant]
     Route: 065
  7. ADVIL [Concomitant]
     Route: 065

REACTIONS (4)
  - ARRHYTHMIA [None]
  - CORONARY ARTERY ATHEROSCLEROSIS [None]
  - MYOCARDIAL INFARCTION [None]
  - MYOCARDIAL ISCHAEMIA [None]
